FAERS Safety Report 5393401-9 (Version None)
Quarter: 2007Q3

REPORT INFORMATION
  Report Type: 
  Country: None (occurrence: None)
  Receive Date: 20070723
  Receipt Date: 20070719
  Transmission Date: 20080115
  Serious: Yes (Hospitalization)
  Sender: FDA-Public Use
  Company Number: DE-BAYER-200710823BVD

PATIENT
  Age: 76 Year
  Sex: Male
  Weight: 80 kg

DRUGS (7)
  1. AVELOX [Suspect]
     Indication: DIABETIC FOOT INFECTION
     Route: 042
  2. AVELOX [Suspect]
  3. PENICILLIN [Concomitant]
     Indication: DIABETIC FOOT INFECTION
  4. RAMIPRIL [Concomitant]
     Dosage: AS USED: 2.5 MG
     Dates: start: 20020101
  5. MARCUMAR [Concomitant]
     Dates: start: 20020101
  6. AMIODARONE HCL [Concomitant]
     Dates: start: 20060101
  7. INSULIN [Concomitant]
     Indication: DIABETES MELLITUS

REACTIONS (1)
  - RENAL FAILURE ACUTE [None]
